FAERS Safety Report 11326042 (Version 1)
Quarter: 2015Q3

REPORT INFORMATION
  Report Type: Report from Study
  Country: US (occurrence: US)
  Receive Date: 20150731
  Receipt Date: 20150731
  Transmission Date: 20151125
  Serious: Yes (Hospitalization, Other)
  Sender: FDA-Public Use
  Company Number: US-ROCHE-803959

PATIENT
  Age: 66 Year

DRUGS (4)
  1. PACLITAXEL. [Suspect]
     Active Substance: PACLITAXEL
     Indication: NON-SMALL CELL LUNG CANCER
     Dosage: OVER 3 HOURS ON DAY 1
     Route: 042
  2. BEVACIZUMAB [Suspect]
     Active Substance: BEVACIZUMAB
     Indication: NON-SMALL CELL LUNG CANCER
     Dosage: 15 MG/KG OVER 30 TO 90MINS ON DAY 1 FOR CYCLE 1 TO 6 (21 DAYS OF CYCLE)?06/SEP/2011: LAST DOSE PRIOR
     Route: 042
  3. CARBOPLATIN. [Suspect]
     Active Substance: CARBOPLATIN
     Indication: NON-SMALL CELL LUNG CANCER
     Dosage: AUC EQUALS TO 6 OVER 30 MIN ON DAY 1
     Route: 042
  4. CIXUTUMUMAB [Suspect]
     Active Substance: CIXUTUMUMAB
     Indication: NON-SMALL CELL LUNG CANCER
     Dosage: OVER 1 HR ON DAYS 1, 8 AND 15
     Route: 042

REACTIONS (18)
  - Hypotension [Unknown]
  - Dehydration [Unknown]
  - Nausea [Unknown]
  - Aspartate aminotransferase increased [Unknown]
  - Fatigue [Unknown]
  - Fatigue [Unknown]
  - Decreased appetite [Unknown]
  - Pancreatitis [Unknown]
  - Vomiting [Unknown]
  - Vomiting [Unknown]
  - Dehydration [Unknown]
  - Amylase increased [Unknown]
  - Chills [Unknown]
  - Alanine aminotransferase increased [Unknown]
  - Blood bilirubin increased [Unknown]
  - Lipase increased [Unknown]
  - Nausea [Unknown]
  - Diarrhoea [Unknown]

NARRATIVE: CASE EVENT DATE: 20110804
